FAERS Safety Report 7156357-4 (Version None)
Quarter: 2010Q4

REPORT INFORMATION
  Report Type: 
  Country: None (occurrence: None)
  Receive Date: 20101214
  Receipt Date: 20101210
  Transmission Date: 20110411
  Serious: Yes (Other)
  Sender: FDA-Public Use
  Company Number: PT-PFIZER INC-2010145495

PATIENT
  Age: 79 Year
  Sex: Female
  Weight: 64 kg

DRUGS (8)
  1. ZARATOR [Suspect]
     Indication: HYPERLIPIDAEMIA
     Dosage: 10 MG, 1X/DAY
     Route: 048
     Dates: start: 20000101, end: 20101110
  2. ZARATOR [Suspect]
     Dosage: 10 MG, 1X/DAY
     Route: 048
     Dates: start: 20101101
  3. EZETROL [Concomitant]
     Indication: HYPERLIPIDAEMIA
     Dosage: 10 MG, UNK
     Route: 048
     Dates: start: 20000101
  4. SOLEXA [Concomitant]
     Indication: ANTIINFLAMMATORY THERAPY
     Dosage: 200 MG, UNK
     Route: 048
     Dates: start: 20090101
  5. KAINEVER [Concomitant]
     Indication: SEDATIVE THERAPY
     Dosage: 2 MG, UNK
     Route: 048
     Dates: start: 20000101
  6. PANTOC [Concomitant]
     Dosage: 20 MG, UNK
     Route: 048
     Dates: start: 20070101
  7. VASTAREL [Concomitant]
     Indication: DIZZINESS
     Dosage: 35 MG, UNK
     Route: 048
     Dates: start: 20070101
  8. CHONDROITIN SULFATE / GLUCOSAMINE HCL / MINERALS NOS / VITAMINS NOS [Concomitant]
     Indication: OSTEOARTHRITIS
     Dosage: UNK
     Route: 048
     Dates: start: 20100101

REACTIONS (5)
  - ALOPECIA [None]
  - ARTHRALGIA [None]
  - DIZZINESS [None]
  - MYALGIA [None]
  - PRODUCT FORMULATION ISSUE [None]
